FAERS Safety Report 14299280 (Version 1)
Quarter: 2017Q4

REPORT INFORMATION
  Report Type: Report from Study
  Country: US (occurrence: US)
  Receive Date: 20171219
  Receipt Date: 20171219
  Transmission Date: 20180321
  Serious: Yes (Other)
  Sender: FDA-Public Use
  Company Number: PHEH2017US040553

PATIENT
  Sex: Female
  Weight: 50.34 kg

DRUGS (1)
  1. GLATOPA [Suspect]
     Active Substance: GLATIRAMER ACETATE
     Indication: MULTIPLE SCLEROSIS
     Dosage: 20 MG, QD (ROTATING INJECTION SITE)
     Route: 058
     Dates: start: 20171031, end: 20171211

REACTIONS (1)
  - Multiple sclerosis [Not Recovered/Not Resolved]
